FAERS Safety Report 10696104 (Version 1)
Quarter: 2015Q1

REPORT INFORMATION
  Report Type: Spontaneous
  Country: US (occurrence: US)
  Receive Date: 20150107
  Receipt Date: 20150107
  Transmission Date: 20150721
  Serious: No
  Sender: FDA-Public Use
  Company Number: US-PFIZER INC-2015001312

PATIENT
  Sex: Male

DRUGS (1)
  1. VIAGRA [Suspect]
     Active Substance: SILDENAFIL CITRATE
     Indication: DISTURBANCE IN SEXUAL AROUSAL
     Dosage: UNK
     Dates: start: 20141226, end: 20141231

REACTIONS (4)
  - Penis disorder [Not Recovered/Not Resolved]
  - Penile vascular disorder [Not Recovered/Not Resolved]
  - Skin discolouration [Recovering/Resolving]
  - Skin odour abnormal [Not Recovered/Not Resolved]

NARRATIVE: CASE EVENT DATE: 20141229
